FAERS Safety Report 6956543-X (Version None)
Quarter: 2010Q3

REPORT INFORMATION
  Report Type: 
  Country: None (occurrence: None)
  Receive Date: 20100830
  Receipt Date: 20100406
  Transmission Date: 20110219
  Serious: No
  Sender: FDA-Public Use
  Company Number: US-AMGEN-KDL403940

PATIENT
  Sex: Female
  Weight: 50.8 kg

DRUGS (4)
  1. NEUPOGEN [Suspect]
     Indication: CHEMOTHERAPY
     Dates: start: 20091218, end: 20100330
  2. NEULASTA [Suspect]
     Indication: CHEMOTHERAPY
  3. TAXOL [Concomitant]
  4. CARBOPLATIN [Concomitant]

REACTIONS (2)
  - DRUG INEFFECTIVE [None]
  - THERAPEUTIC RESPONSE DECREASED [None]
